FAERS Safety Report 7357951-8 (Version None)
Quarter: 2011Q1

REPORT INFORMATION
  Report Type: 
  Country: None (occurrence: None)
  Receive Date: 20110307
  Receipt Date: 20101012
  Transmission Date: 20110831
  Serious: No
  Sender: FDA-Public Use
  Company Number: AECAN201000391

PATIENT
  Age: 31 Year
  Sex: Female
  Weight: 93.4 kg

DRUGS (17)
  1. PROLASTIN-C [Suspect]
     Indication: ALPHA-1 ANTI-TRYPSIN DEFICIENCY
     Dosage: 5600 MG; QW; IV
     Route: 042
     Dates: start: 20101005
  2. SYNTHROID [Concomitant]
  3. RABEPRAZOLE SODIUM [Concomitant]
  4. TWINRIX /01330901/ [Concomitant]
  5. TRAMADOL [Concomitant]
  6. VITAMIN D /00318501/ [Concomitant]
  7. SPIRIVA [Concomitant]
  8. CELEBREX [Concomitant]
  9. LYRICA [Concomitant]
  10. SALBUTAMOL [Concomitant]
  11. CITALOPRAM HYDROBROMIDE [Concomitant]
  12. CELEXA [Concomitant]
  13. PROLASTIN [Suspect]
     Indication: ALPHA-1 ANTI-TRYPSIN DEFICIENCY
     Dosage: 5600 MG; QW; IV
     Route: 042
     Dates: start: 20100701, end: 20100901
  14. ADVAIR DISKUS 100/50 [Concomitant]
  15. FLUTICASONE PROPIONATE [Concomitant]
  16. LASIX [Concomitant]
  17. OMEPRAZOLE [Concomitant]

REACTIONS (4)
  - INFUSION RELATED REACTION [None]
  - CONDITION AGGRAVATED [None]
  - CHEST DISCOMFORT [None]
  - PRODUCT FORMULATION ISSUE [None]
